FAERS Safety Report 9230347 (Version 2)
Quarter: 2013Q2

REPORT INFORMATION
  Report Type: Spontaneous
  Country: CA (occurrence: CA)
  Receive Date: 20130415
  Receipt Date: 20130422
  Transmission Date: 20140414
  Serious: Yes (Other)
  Sender: FDA-Public Use
  Company Number: CA-SANOFI-AVENTIS-2013SA036839

PATIENT
  Sex: Female

DRUGS (1)
  1. LANTUS [Suspect]
     Indication: PRODUCT USED FOR UNKNOWN INDICATION
     Dosage: 3 ML CARTRIDGE, SHE BELIEVED SOMEONE PUTTING INSULIN GLARGINE IN HER MILK AND SHE WAS INGESTING IT

REACTIONS (13)
  - Exophthalmos [Unknown]
  - Incorrect route of drug administration [Unknown]
  - Hypotension [Unknown]
  - Dry mouth [Unknown]
  - Ocular hyperaemia [Unknown]
  - Nervousness [Unknown]
  - Aggression [Unknown]
  - Dehydration [Unknown]
  - Dizziness [Unknown]
  - Appetite disorder [Unknown]
  - Thirst decreased [Unknown]
  - Weight decreased [Unknown]
  - Urine odour abnormal [Unknown]
